FAERS Safety Report 7963994-3 (Version None)
Quarter: 2011Q4

REPORT INFORMATION
  Report Type: 
  Country: None (occurrence: None)
  Receive Date: 20111208
  Receipt Date: 20111205
  Transmission Date: 20120403
  Serious: Yes (Other)
  Sender: FDA-Public Use
  Company Number: US-BAYER-2011-116771

PATIENT
  Age: 54 Year
  Sex: Female
  Weight: 64.399 kg

DRUGS (1)
  1. MAGNEVIST [Suspect]
     Indication: NUCLEAR MAGNETIC RESONANCE IMAGING BRAIN
     Dosage: 4 ML, ONCE
     Route: 042
     Dates: start: 20111205, end: 20111205

REACTIONS (7)
  - DYSKINESIA [None]
  - HYPOAESTHESIA ORAL [None]
  - DIZZINESS [None]
  - SEIZURE LIKE PHENOMENA [None]
  - VOMITING [None]
  - TREMOR [None]
  - COUGH [None]
